FAERS Safety Report 23049933 (Version 2)
Quarter: 2023Q4

REPORT INFORMATION
  Report Type: Spontaneous
  Country: JP (occurrence: JP)
  Receive Date: 20231010
  Receipt Date: 20231113
  Transmission Date: 20240110
  Serious: Yes (Death)
  Sender: FDA-Public Use
  Company Number: JP-BRISTOL-MYERS SQUIBB COMPANY-2023-141313

PATIENT
  Age: 7 Decade
  Sex: Male

DRUGS (12)
  1. YERVOY [Suspect]
     Active Substance: IPILIMUMAB
     Indication: Pleural mesothelioma malignant recurrent
     Dosage: TOTAL NUMBER OF COURSE: 1 COURSE
     Route: 041
     Dates: start: 20230221, end: 20230221
  2. OPDIVO [Suspect]
     Active Substance: NIVOLUMAB
     Indication: Pleural mesothelioma malignant recurrent
     Dosage: TOTAL NUMBER OF COURSE: 2 COURSE
     Route: 041
     Dates: start: 20230221, end: 20230328
  3. HYDROMORPHONE HYDROCHLORIDE [Concomitant]
     Active Substance: HYDROMORPHONE HYDROCHLORIDE
     Indication: Pain
     Dosage: ONCE/DAY IN THE MORNING
     Route: 048
     Dates: start: 20221226, end: 20230715
  4. HYDROMORPHONE HYDROCHLORIDE [Concomitant]
     Active Substance: HYDROMORPHONE HYDROCHLORIDE
     Dosage: ONCE/DAY IN THE MORNING
     Route: 048
     Dates: start: 20230522, end: 20230715
  5. HYDROMORPHONE HYDROCHLORIDE [Concomitant]
     Active Substance: HYDROMORPHONE HYDROCHLORIDE
     Indication: Pain
     Dosage: AS NEEDED
     Route: 048
     Dates: start: 20221226, end: 20230715
  6. CELECOXIB [Concomitant]
     Active Substance: CELECOXIB
     Indication: Pain
     Dosage: MORNING AND EVENING/DAY
     Route: 048
     Dates: start: 20221210, end: 20230715
  7. CALONAL [Concomitant]
     Active Substance: ACETAMINOPHEN
     Indication: Pain
     Dosage: AFTER EACH MEAL/DAY
     Route: 048
     Dates: start: 20230105, end: 20230715
  8. SODIUM PICOSULFATE [Concomitant]
     Active Substance: SODIUM PICOSULFATE
     Indication: Constipation
     Dosage: APPROXIMATELY 0.5ML/TIME, AS NEEDED
     Route: 048
     Dates: start: 20230617, end: 20230617
  9. PREGABALIN [Concomitant]
     Active Substance: PREGABALIN
     Indication: Pain
     Dosage: MORNING AND EVENING/DAY
     Route: 048
     Dates: start: 20230222, end: 20230307
  10. SYMPROIC [Concomitant]
     Active Substance: NALDEMEDINE
     Indication: Constipation
     Dosage: MORNING/DAY
     Route: 048
     Dates: start: 20230622, end: 20230715
  11. MAGNESIUM OXIDE [Concomitant]
     Active Substance: MAGNESIUM OXIDE
     Indication: Constipation
     Dosage: AFTER EACH MEAL/DAY
     Route: 048
     Dates: start: 20221215, end: 20230715
  12. GLYCERIN ADULT [Concomitant]
     Active Substance: GLYCERIN
     Indication: Product used for unknown indication

REACTIONS (1)
  - Drug-induced liver injury [Fatal]

NARRATIVE: CASE EVENT DATE: 20230228
